FAERS Safety Report 19082900 (Version 2)
Quarter: 2021Q2

REPORT INFORMATION
  Report Type: Spontaneous
  Country: IT (occurrence: IT)
  Receive Date: 20210401
  Receipt Date: 20210405
  Transmission Date: 20210717
  Serious: Yes (Hospitalization)
  Sender: FDA-Public Use
  Company Number: IT-TEVA-2021-IT-1895585

PATIENT
  Age: 83 Year
  Sex: Male

DRUGS (5)
  1. 5?FLUOROURACIL [Suspect]
     Active Substance: FLUOROURACIL
     Indication: BLEB REVISION
  2. BETAMETHASONE. [Concomitant]
     Active Substance: BETAMETHASONE
     Indication: PRODUCT USED FOR UNKNOWN INDICATION
     Dosage: SIX TIMES PER DAY
     Route: 047
  3. CHLORAMPHENICOL [Concomitant]
     Active Substance: CHLORAMPHENICOL
     Indication: PRODUCT USED FOR UNKNOWN INDICATION
     Dosage: SIX TIMES PER DAY
     Route: 047
  4. 5?FLUOROURACIL [Suspect]
     Active Substance: FLUOROURACIL
     Indication: TENON^S CYST
  5. 5?FLUOROURACIL [Suspect]
     Active Substance: FLUOROURACIL
     Indication: BLEB REVISION
     Route: 057

REACTIONS (1)
  - Endophthalmitis [Recovered/Resolved]
